FAERS Safety Report 6684367-X (Version None)
Quarter: 2010Q2

REPORT INFORMATION
  Report Type: 
  Country: None (occurrence: None)
  Receive Date: 20100416
  Receipt Date: 20100406
  Transmission Date: 20101027
  Serious: Yes (Hospitalization)
  Sender: FDA-Public Use
  Company Number: US-ABBOTT-10P-163-0636704-00

PATIENT
  Sex: Male
  Weight: 93.07 kg

DRUGS (10)
  1. NIASPAN [Suspect]
     Indication: HYPERLIPIDAEMIA
     Dosage: EVERY NIGHT
     Route: 048
     Dates: start: 20090401
  2. NIASPAN [Suspect]
     Indication: HIGH DENSITY LIPOPROTEIN DECREASED
  3. PROBENECID [Concomitant]
     Indication: BLOOD URIC ACID
     Dates: start: 20010101
  4. OXAPROZIN [Concomitant]
     Indication: ARTHRITIS
  5. CARVEDILOL [Concomitant]
     Indication: HYPERTENSION
     Dates: start: 20080101
  6. CRESTOR [Concomitant]
     Indication: CORONARY ARTERIAL STENT INSERTION
     Dates: start: 20080101
  7. CAPEDEX [Concomitant]
     Indication: GASTROOESOPHAGEAL REFLUX DISEASE
     Dates: start: 20090101
  8. ZETIA [Concomitant]
     Indication: BLOOD CHOLESTEROL INCREASED
  9. ASPIRIN [Concomitant]
     Indication: CORONARY ARTERY BYPASS
     Dosage: EVERY NIGHT
     Dates: start: 19920101, end: 20100301
  10. TRICOR [Concomitant]
     Indication: BLOOD TRIGLYCERIDES INCREASED
     Dosage: EVERY NIGHT
     Dates: start: 20080101

REACTIONS (2)
  - FLUSHING [None]
  - OSTEOARTHRITIS [None]
